FAERS Safety Report 7633287-2 (Version None)
Quarter: 2011Q3

REPORT INFORMATION
  Report Type: 
  Country: None (occurrence: None)
  Receive Date: 20110701
  Receipt Date: 20100421
  Transmission Date: 20111222
  Serious: Yes (Hospitalization, Other)
  Sender: FDA-Public Use
  Company Number: 7002249

PATIENT
  Age: 49 Year
  Sex: Male

DRUGS (2)
  1. REBIF [Suspect]
     Indication: MULTIPLE SCLEROSIS
     Dosage: 44 MCG, 3 IN 1 WK, SUBCUTANEOUS
     Route: 058
     Dates: start: 20100409, end: 20100701
  2. SYNTHROID [Concomitant]

REACTIONS (6)
  - INJECTION SITE ERYTHEMA [None]
  - SJOGREN'S SYNDROME [None]
  - MULTIPLE SCLEROSIS RELAPSE [None]
  - THYROID FUNCTION TEST ABNORMAL [None]
  - WHITE BLOOD CELL COUNT DECREASED [None]
  - DEPRESSION [None]
